FAERS Safety Report 10167764 (Version 2)
Quarter: 2014Q2

REPORT INFORMATION
  Report Type: Spontaneous
  Country: FR (occurrence: FR)
  Receive Date: 20140512
  Receipt Date: 20140512
  Transmission Date: 20141212
  Serious: Yes (Life-Threatening, Hospitalization, Other)
  Sender: FDA-Public Use
  Company Number: FR-TEVA-366854ISR

PATIENT
  Age: 44 Year
  Sex: Female

DRUGS (2)
  1. AMOXICILLINE ACIDE CLAVULANIQUE TEVA 500 MG [Suspect]
     Indication: EAR INFECTION
     Dosage: 2 TABLETS IN ONE INTAKE
     Route: 048
     Dates: start: 20121023, end: 20121023
  2. PREDNISOLONE [Suspect]
     Indication: EAR INFECTION
     Route: 048
     Dates: start: 20121023

REACTIONS (1)
  - Anaphylactic shock [Recovered/Resolved]
